FAERS Safety Report 7513493-8 (Version None)
Quarter: 2011Q2

REPORT INFORMATION
  Report Type: 
  Country: None (occurrence: None)
  Receive Date: 20110531
  Receipt Date: 20110505
  Transmission Date: 20111010
  Serious: Yes (Hospitalization, Other)
  Sender: FDA-Public Use
  Company Number: US-BAYER-2011-015986

PATIENT
  Age: 28 Year
  Sex: Female
  Weight: 90.703 kg

DRUGS (5)
  1. ORTHO TRI-CYCLEN LO [Concomitant]
     Dosage: UNK UNK, QD
     Dates: end: 20090228
  2. ACCUTANE [Concomitant]
     Indication: ACNE
     Dosage: 60 MG DAILY, UNK
     Dates: start: 20090201
  3. EFFEXOR [Concomitant]
     Indication: DEPRESSION
     Dosage: 75 MG, UNK
     Dates: start: 20080101
  4. ANTIMIGRAINE PREPARATIONS [Concomitant]
     Dosage: UNK
     Dates: start: 20000201
  5. YASMIN [Suspect]
     Indication: ACNE
     Dosage: UNK
     Dates: start: 20090101, end: 20090101

REACTIONS (4)
  - PULMONARY EMBOLISM [None]
  - DEEP VEIN THROMBOSIS [None]
  - INJURY [None]
  - PAIN [None]
